FAERS Safety Report 16736974 (Version 1)
Quarter: 2019Q3

REPORT INFORMATION
  Report Type: Spontaneous
  Country: None (occurrence: US)
  Receive Date: 20190823
  Receipt Date: 20190823
  Transmission Date: 20191005
  Serious: Yes (Other)
  Sender: FDA-Public Use
  Company Number: US-TARGET-2073597

PATIENT
  Sex: Female

DRUGS (1)
  1. STOOL SOFTENER LAXATIVE [Suspect]
     Active Substance: DOCUSATE SODIUM
     Indication: CONSTIPATION
     Route: 048
     Dates: start: 20190804

REACTIONS (2)
  - Throat irritation [None]
  - Pharyngeal swelling [None]
